FAERS Safety Report 8557435-5 (Version None)
Quarter: 2012Q3

REPORT INFORMATION
  Report Type: 
  Country: None (occurrence: None)
  Receive Date: 20120801
  Receipt Date: 20120726
  Transmission Date: 20120928
  Serious: Yes (Death, Other)
  Sender: FDA-Public Use
  Company Number: BR-ELI_LILLY_AND_COMPANY-BR201206000607

PATIENT
  Sex: Female
  Weight: 57 kg

DRUGS (9)
  1. ONDANSETRON [Concomitant]
     Dosage: UNK, UNKNOWN
     Route: 042
  2. MORFINA                            /00036301/ [Concomitant]
     Dosage: UNK, UNKNOWN
     Route: 065
  3. DEXAMETASON [Concomitant]
     Dosage: UNK, UNKNOWN
     Route: 042
  4. SERTRALINE HYDROCHLORIDE [Concomitant]
     Dosage: UNK, UNKNOWN
     Route: 065
  5. BROMOPRIDA [Concomitant]
     Dosage: UNK, UNKNOWN
     Route: 065
  6. DOCETAXEL [Concomitant]
     Indication: NEOPLASM MALIGNANT
     Dosage: 157 MG, UNKNOWN
     Route: 042
     Dates: start: 20120429
  7. DOCETAXEL [Concomitant]
     Dosage: 157 MG, UNKNOWN
     Route: 042
     Dates: start: 20120506
  8. GEMZAR [Suspect]
     Indication: NEOPLASM MALIGNANT
     Dosage: 1412 MG, UNKNOWN
     Route: 042
     Dates: start: 20120429
  9. GEMZAR [Suspect]
     Dosage: 1412 MG, UNKNOWN
     Route: 042
     Dates: start: 20120506

REACTIONS (4)
  - ERYTHROPENIA [None]
  - MUCOSAL INFLAMMATION [None]
  - NEUTROPENIA [None]
  - NEOPLASM PROGRESSION [None]
